FAERS Safety Report 8312503-8 (Version None)
Quarter: 2012Q2

REPORT INFORMATION
  Report Type: 
  Country: None (occurrence: None)
  Receive Date: 20120425
  Receipt Date: 20120417
  Transmission Date: 20120825
  Serious: Yes (Other)
  Sender: FDA-Public Use
  Company Number: BR-MERCK-1204BRA00048

PATIENT
  Sex: Male
  Weight: 15 kg

DRUGS (7)
  1. SINGULAIR [Suspect]
     Indication: ASTHMA
     Route: 048
     Dates: start: 20110101, end: 20110101
  2. FENOTEROL HYDROBROMIDE [Concomitant]
     Indication: ASTHMATIC CRISIS
     Route: 065
  3. SINGULAIR [Suspect]
     Route: 048
     Dates: start: 20110101
  4. TERBUTALINE SULFATE [Concomitant]
     Indication: ASTHMATIC CRISIS
     Route: 065
     Dates: start: 20120101
  5. PREDNISOLONE [Concomitant]
     Indication: ANTIALLERGIC THERAPY
     Route: 065
     Dates: start: 20100101
  6. IPRATROPIUM BROMIDE [Concomitant]
     Indication: ASTHMATIC CRISIS
     Route: 065
     Dates: start: 20100101
  7. DEXAMETHASONE [Concomitant]
     Indication: ASTHMATIC CRISIS
     Route: 065

REACTIONS (2)
  - ASTHMATIC CRISIS [None]
  - DRUG INEFFECTIVE [None]
